FAERS Safety Report 24401647 (Version 1)
Quarter: 2024Q4

REPORT INFORMATION
  Report Type: Report from Study
  Country: US (occurrence: US)
  Receive Date: 20241007
  Receipt Date: 20241007
  Transmission Date: 20250114
  Serious: No
  Sender: DR REDDYS
  Company Number: US-DRL-USA-CLI/USA/24/0013799

PATIENT
  Age: 11 Year
  Sex: Male
  Weight: 79.83 kg

DRUGS (6)
  1. JAVYGTOR [Suspect]
     Active Substance: SAPROPTERIN DIHYDROCHLORIDE
     Indication: Hyperphenylalaninaemia
     Dosage: 14 TABLETS (1400 MG) BY MOUTH DAILY
     Route: 048
  2. JAVYGTOR [Suspect]
     Active Substance: SAPROPTERIN DIHYDROCHLORIDE
     Indication: Phenylketonuria
  3. SERTRALINE HYDROCHLORIDE [Concomitant]
     Active Substance: SERTRALINE HYDROCHLORIDE
     Indication: Product used for unknown indication
     Route: 065
  4. Cetrizine Hcl 5 Mg Tablet [Concomitant]
     Indication: Product used for unknown indication
     Route: 065
  5. Cetrizine Hcl 10 mg tablet [Concomitant]
     Indication: Product used for unknown indication
     Route: 065
  6. Fluticasone Propionate 50 MCG SPRAY SUSP [Concomitant]
     Indication: Product used for unknown indication
     Dosage: FORMULATION: SPRAY SUSP
     Route: 065

REACTIONS (1)
  - Ear infection [Recovered/Resolved]
